FAERS Safety Report 5817338-3 (Version None)
Quarter: 2008Q3

REPORT INFORMATION
  Report Type: 
  Country: None (occurrence: None)
  Receive Date: 20080715
  Receipt Date: 20080703
  Transmission Date: 20090109
  Serious: Yes (Death)
  Sender: FDA-Public Use
  Company Number: GXKR2008GB03007

PATIENT
  Age: 19 Year
  Sex: Male
  Weight: 40 kg

DRUGS (9)
  1. NIFEDIPINE [Suspect]
     Dosage: 15 MG, TID
  2. OMEPRAZOLE [Suspect]
     Dosage: 40 MG, QD
  3. VALLERGAN (ALIMEMAZINE TARTRATE) [Suspect]
  4. ATROVENT [Concomitant]
  5. DOMPERIDONE (DOMPERIDONE) [Concomitant]
  6. FLUTICASONE PROPIONATE [Concomitant]
  7. GAVISCON RECKITT + COLMAN (ALGINIC ACID, ALUMINIUM HYDROXIDE GEL, DRIE [Concomitant]
  8. SEREVENT [Concomitant]
  9. SALBUTAMOL SULFATE (SALBUTAMOL SULFATE) [Concomitant]

REACTIONS (6)
  - BLOOD PRESSURE DECREASED [None]
  - CARDIAC DISORDER [None]
  - HAEMOLYSIS [None]
  - IDIOPATHIC THROMBOCYTOPENIC PURPURA [None]
  - MALAISE [None]
  - SUDDEN DEATH [None]
